FAERS Safety Report 19820415 (Version 1)
Quarter: 2021Q3

REPORT INFORMATION
  Report Type: Spontaneous
  Country: US (occurrence: US)
  Receive Date: 20210910
  Receipt Date: 20210910
  Transmission Date: 20211014
  Serious: Yes (Life-Threatening, Other)
  Sender: FDA-Public Use
  Company Number: None

PATIENT
  Sex: Female
  Weight: 54.9 kg

DRUGS (10)
  1. FEMARA 7.5MG [Concomitant]
  2. OMEGA 3 1000MG [Concomitant]
  3. VERZENIO [Suspect]
     Active Substance: ABEMACICLIB
     Indication: BREAST CANCER
     Dates: start: 20210208, end: 20210910
  4. QUETIAPINE 25MG [Concomitant]
     Active Substance: QUETIAPINE
  5. MIRTAZAPINE 15MG [Concomitant]
     Active Substance: MIRTAZAPINE
  6. VITAMIN D3 5000 IU [Concomitant]
  7. ONDANSETRON ODT 8MG [Concomitant]
     Active Substance: ONDANSETRON
  8. MULTIVITAMIN [Concomitant]
     Active Substance: VITAMINS
  9. LUNESTA [Concomitant]
     Active Substance: ESZOPICLONE
  10. NALTREXONE 50MG [Concomitant]
     Active Substance: NALTREXONE

REACTIONS (2)
  - Drug ineffective [None]
  - Disease progression [None]
